FAERS Safety Report 8167493-8 (Version None)
Quarter: 2012Q1

REPORT INFORMATION
  Report Type: 
  Country: None (occurrence: None)
  Receive Date: 20120221
  Receipt Date: 20120123
  Transmission Date: 20120608
  Serious: Yes (Other)
  Sender: FDA-Public Use
  Company Number: 918753

PATIENT
  Sex: Male

DRUGS (1)
  1. CLEAR EYES REDNESS [Suspect]
     Dosage: 1 APPLICATION TO EYE
     Dates: start: 20120123, end: 20120123

REACTIONS (5)
  - OCULAR HYPERAEMIA [None]
  - RHINORRHOEA [None]
  - EYE HAEMORRHAGE [None]
  - HEADACHE [None]
  - EYE PAIN [None]
